FAERS Safety Report 12484369 (Version 1)
Quarter: 2016Q2

REPORT INFORMATION
  Report Type: Spontaneous
  Country: US (occurrence: None)
  Receive Date: 20160620
  Receipt Date: 20160620
  Transmission Date: 20160815
  Serious: Yes (Other)
  Sender: FDA-Public Use
  Company Number: None

PATIENT
  Age: 57 Year
  Sex: Male
  Weight: 93.44 kg

DRUGS (22)
  1. ORAGANO JUICE [Concomitant]
  2. METFORMIN [Concomitant]
     Active Substance: METFORMIN HYDROCHLORIDE
  3. TUMS ULTRA [Concomitant]
     Active Substance: CALCIUM CARBONATE
  4. PEPSID [Concomitant]
  5. GNC MEGAMEN^S VITAMINS [Concomitant]
  6. TURMERIC [Concomitant]
     Active Substance: TURMERIC
  7. TYLENOL [Concomitant]
     Active Substance: ACETAMINOPHEN
  8. ESSENCE OF ROSEMARY [Concomitant]
  9. PROTONIX [Concomitant]
     Active Substance: PANTOPRAZOLE SODIUM
  10. RISPERDOL [Concomitant]
  11. KYOLIC GARLIC [Concomitant]
     Active Substance: DIETARY SUPPLEMENT
  12. LYRICA [Concomitant]
     Active Substance: PREGABALIN
  13. BENTYL [Concomitant]
     Active Substance: DICYCLOMINE HYDROCHLORIDE
  14. TOTAL BODY PURGE [Concomitant]
  15. HEMPANOL [Concomitant]
  16. MAGNESIUM FLAKES [Concomitant]
  17. LINZESS [Concomitant]
     Active Substance: LINACLOTIDE
  18. VITAMIN B12 [Concomitant]
     Active Substance: CYANOCOBALAMIN
  19. CAPZAISIN CREAM (CAPZASIN) [Suspect]
     Active Substance: CAPSAICIN
     Indication: MYALGIA
     Dosage: CREEM  ONCE/DAY APPLIED TO SKIN OF MUSSEL PAIN AREAS
     Route: 061
     Dates: start: 20160420, end: 20160420
  20. LISINOPRIL. [Concomitant]
     Active Substance: LISINOPRIL
  21. DOXYCYCLINE. [Concomitant]
     Active Substance: DOXYCYCLINE
  22. ACIDOPHELUS [Concomitant]

REACTIONS (4)
  - Application site erythema [None]
  - Application site pain [None]
  - Chemical injury [None]
  - Application site warmth [None]

NARRATIVE: CASE EVENT DATE: 20160420
